FAERS Safety Report 18051197 (Version 2)
Quarter: 2020Q3

REPORT INFORMATION
  Report Type: Report from Study
  Country: US (occurrence: US)
  Receive Date: 20200721
  Receipt Date: 20200723
  Transmission Date: 20201103
  Serious: Yes (Other)
  Sender: FDA-Public Use
  Company Number: US-SA-2020SA185120

PATIENT

DRUGS (1)
  1. INSULIN LISPRO [Suspect]
     Active Substance: INSULIN LISPRO
     Indication: DIABETES MELLITUS
     Dosage: 14 IU, TID
     Route: 058
     Dates: start: 20150101

REACTIONS (4)
  - Pulmonary hypertension [Unknown]
  - Dyspnoea [Unknown]
  - Memory impairment [Unknown]
  - Cardiac failure congestive [Unknown]
